FAERS Safety Report 8819401 (Version 2)
Quarter: 2013Q1

REPORT INFORMATION
  Report Type: Spontaneous
  Country: US (occurrence: None)
  Receive Date: 20121003
  Receipt Date: 20121113
  Transmission Date: 20140127
  Serious: Yes (Other)
  Sender: FDA-Public Use
  Company Number: 2012P1059065

PATIENT
  Age: 51 Year
  Sex: Female
  Weight: 81.65 kg

DRUGS (6)
  1. FENTANYL PATCH [Suspect]
     Indication: PAIN
     Dosage: 1 PATCH; Q3D; TDER
     Route: 062
     Dates: start: 201207
  2. FENTANYL PATCH [Suspect]
     Indication: PAIN
     Dosage: 1 PATCH; Q3D; TDER
     Route: 062
     Dates: start: 201103, end: 201208
  3. CLONAZEPAM [Concomitant]
  4. AMBIEN [Concomitant]
  5. VERAPAMIL [Concomitant]
  6. ADDITIONAL UNSPECIFIED MEDICATIONS [Concomitant]

REACTIONS (11)
  - Post-traumatic stress disorder [None]
  - Sleep terror [None]
  - Rib fracture [None]
  - Insomnia [None]
  - Pain [None]
  - Restlessness [None]
  - Sleep disorder [None]
  - Stress [None]
  - Weight decreased [None]
  - Accidental exposure to product [None]
  - Device leakage [None]
